FAERS Safety Report 23112230 (Version 8)
Quarter: 2024Q2

REPORT INFORMATION
  Report Type: Spontaneous
  Country: US (occurrence: US)
  Receive Date: 20231026
  Receipt Date: 20240520
  Transmission Date: 20240716
  Serious: No
  Sender: FDA-Public Use
  Company Number: US-BRISTOL-MYERS SQUIBB COMPANY-2023-117215

PATIENT
  Age: 81 Year
  Sex: Female

DRUGS (3)
  1. POMALYST [Suspect]
     Active Substance: POMALIDOMIDE
     Indication: Plasma cell myeloma
     Route: 048
     Dates: start: 202308
  2. POMALYST [Suspect]
     Active Substance: POMALIDOMIDE
     Dosage: FREQUENCY: QD FOR 21 DAYS ON 7 DAYS OFF
     Route: 048
     Dates: start: 20231109
  3. POMALYST [Suspect]
     Active Substance: POMALIDOMIDE
     Route: 048

REACTIONS (16)
  - Product packaging issue [Unknown]
  - Balance disorder [Unknown]
  - Full blood count decreased [Unknown]
  - Headache [Unknown]
  - Pain [Unknown]
  - Dyspnoea [Unknown]
  - Product temperature excursion issue [Unknown]
  - Diarrhoea [Unknown]
  - Fatigue [Unknown]
  - Dizziness [Unknown]
  - Asthenia [Unknown]
  - Pruritus [Unknown]
  - Alopecia [Unknown]
  - Musculoskeletal chest pain [Unknown]
  - Swollen tongue [Unknown]
  - Acne [Unknown]
